FAERS Safety Report 8450616-0 (Version None)
Quarter: 2012Q2

REPORT INFORMATION
  Report Type: 
  Country: None (occurrence: None)
  Receive Date: 20120620
  Receipt Date: 20120608
  Transmission Date: 20120825
  Serious: Yes (Hospitalization)
  Sender: FDA-Public Use
  Company Number: US-VERTEX PHARMACEUTICALS INC.-AE-2012-007936

PATIENT
  Sex: Male

DRUGS (9)
  1. INCIVEK [Suspect]
     Indication: HEPATITIS C
     Route: 048
     Dates: start: 20110805, end: 20110826
  2. LISINOPRIL [Concomitant]
  3. PEGASYS [Concomitant]
     Indication: HEPATITIS C
     Route: 058
     Dates: start: 20110805, end: 20110826
  4. METOPROLOL SUCCINATE [Concomitant]
  5. MULTI-VITAMIN [Concomitant]
  6. NORVASC [Concomitant]
  7. HYDROCODONE [Concomitant]
  8. RIBAVIRIN [Concomitant]
     Indication: HEPATITIS C
     Route: 048
     Dates: start: 20110805, end: 20110826
  9. EFFEXOR [Concomitant]

REACTIONS (2)
  - RENAL FAILURE ACUTE [None]
  - OFF LABEL USE [None]
